FAERS Safety Report 15284835 (Version 2)
Quarter: 2018Q4

REPORT INFORMATION
  Report Type: Spontaneous
  Country: AU (occurrence: AU)
  Receive Date: 20180816
  Receipt Date: 20181031
  Transmission Date: 20190204
  Serious: Yes (Other)
  Sender: FDA-Public Use
  Company Number: AU-NOVOPROD-616052

PATIENT
  Age: 42 Year
  Sex: Female
  Weight: 108 kg

DRUGS (2)
  1. SAXENDA [Suspect]
     Active Substance: LIRAGLUTIDE
     Indication: WEIGHT CONTROL
     Dosage: 6 MG/ML DAILY
     Route: 058
     Dates: start: 20170909, end: 201712
  2. MIRENA [Concomitant]
     Active Substance: LEVONORGESTREL
     Indication: CONTRACEPTION
     Dosage: EVERY 5 YEARS
     Route: 065

REACTIONS (2)
  - Metastases to lymph nodes [Unknown]
  - Papillary thyroid cancer [Unknown]

NARRATIVE: CASE EVENT DATE: 201807
